FAERS Safety Report 20576622 (Version 2)
Quarter: 2022Q3

REPORT INFORMATION
  Report Type: Spontaneous
  Country: US (occurrence: US)
  Receive Date: 20220310
  Receipt Date: 20220730
  Transmission Date: 20221027
  Serious: No
  Sender: FDA-Public Use
  Company Number: US-SA-2022SA044966

PATIENT
  Age: 21 Year
  Sex: Female

DRUGS (1)
  1. DUPIXENT [Suspect]
     Active Substance: DUPILUMAB
     Indication: Dermatitis atopic
     Dosage: 300 MG
     Route: 058
     Dates: start: 20220124

REACTIONS (3)
  - COVID-19 [Not Recovered/Not Resolved]
  - SARS-CoV-2 test positive [Not Recovered/Not Resolved]
  - Urinary tract infection [Unknown]

NARRATIVE: CASE EVENT DATE: 20220225
